FAERS Safety Report 8175631-6 (Version None)
Quarter: 2012Q1

REPORT INFORMATION
  Report Type: 
  Country: None (occurrence: None)
  Receive Date: 20120301
  Receipt Date: 20120228
  Transmission Date: 20120608
  Serious: Yes (Hospitalization)
  Sender: FDA-Public Use
  Company Number: US-BIOGENIDEC-2012BI006875

PATIENT
  Age: 55 Year
  Sex: Male

DRUGS (3)
  1. TYSABRI [Suspect]
     Indication: MULTIPLE SCLEROSIS
     Route: 042
     Dates: start: 20091030, end: 20100419
  2. TYSABRI [Suspect]
     Route: 042
     Dates: start: 20110728
  3. TYSABRI [Suspect]
     Route: 042
     Dates: start: 20100513, end: 20100630

REACTIONS (1)
  - PNEUMONIA [None]
